FAERS Safety Report 21702269 (Version 1)
Quarter: 2022Q4

REPORT INFORMATION
  Report Type: Report from Study
  Country: DE (occurrence: DE)
  Receive Date: 20221208
  Receipt Date: 20221208
  Transmission Date: 20230113
  Serious: Yes (Hospitalization, Other)
  Sender: FDA-Public Use
  Company Number: DE-CELGENE-DEU-20201204683

PATIENT
  Age: 58 Year
  Sex: Female
  Weight: 80 kg

DRUGS (21)
  1. LENALIDOMIDE [Suspect]
     Active Substance: LENALIDOMIDE
     Indication: Ductal adenocarcinoma of pancreas
     Route: 048
     Dates: start: 20201109, end: 20201210
  2. AZACITIDINE [Suspect]
     Active Substance: AZACITIDINE
     Indication: Ductal adenocarcinoma of pancreas
     Dosage: FREQUENCY TEXT: ON DAY 7,6,5,4,3,2,1?56.73 MILLIGRAM
     Route: 058
     Dates: start: 20200803, end: 20201009
  3. DURVALUMAB [Suspect]
     Active Substance: DURVALUMAB
     Indication: Ductal adenocarcinoma of pancreas
     Route: 042
     Dates: start: 20201109, end: 20201207
  4. PACLITAXEL [Suspect]
     Active Substance: PACLITAXEL
     Indication: Ductal adenocarcinoma of pancreas
     Dosage: CYCLE 1 DAY 1
     Route: 065
     Dates: start: 20200810
  5. PACLITAXEL [Suspect]
     Active Substance: PACLITAXEL
     Dosage: CYCLE 1 DAY 8
     Route: 065
     Dates: start: 20200817
  6. PACLITAXEL [Suspect]
     Active Substance: PACLITAXEL
     Dosage: CYCLE 1 DAY 15
     Route: 065
     Dates: start: 20200824
  7. PACLITAXEL [Suspect]
     Active Substance: PACLITAXEL
     Dosage: CYCLE 2 DAY 1
     Route: 065
     Dates: start: 20200914
  8. PACLITAXEL [Suspect]
     Active Substance: PACLITAXEL
     Dosage: CYCLE 2 DAY 8
     Route: 065
     Dates: start: 20200921
  9. PACLITAXEL [Suspect]
     Active Substance: PACLITAXEL
     Dosage: CYCLE 2 DAY 15
     Route: 065
     Dates: start: 20200928
  10. PACLITAXEL [Suspect]
     Active Substance: PACLITAXEL
     Dosage: CYCLE 3 DAY 1
     Route: 065
     Dates: start: 20201012
  11. PACLITAXEL [Suspect]
     Active Substance: PACLITAXEL
     Dosage: CYCLE 3 DAY 8
     Route: 065
     Dates: start: 20201019
  12. GEMCITABINE [Suspect]
     Active Substance: GEMCITABINE
     Indication: Ductal adenocarcinoma of pancreas
     Dosage: CYCLE 1 DAY 1
     Route: 065
     Dates: start: 20200810
  13. GEMCITABINE [Suspect]
     Active Substance: GEMCITABINE
     Dosage: CYCLE 1 DAY 8
     Route: 065
     Dates: start: 20200817
  14. GEMCITABINE [Suspect]
     Active Substance: GEMCITABINE
     Dosage: CYCLE 1 DAY 15
     Route: 065
     Dates: start: 20200824
  15. GEMCITABINE [Suspect]
     Active Substance: GEMCITABINE
     Dosage: CYCLE 2 DAY 1
     Route: 065
     Dates: start: 20200914
  16. GEMCITABINE [Suspect]
     Active Substance: GEMCITABINE
     Dosage: CYCLE 2 DAY 8
     Route: 065
     Dates: start: 20200921
  17. GEMCITABINE [Suspect]
     Active Substance: GEMCITABINE
     Dosage: CYCLE 2 DAY 15
     Route: 065
     Dates: start: 20200928
  18. GEMCITABINE [Suspect]
     Active Substance: GEMCITABINE
     Dosage: CYCLE 3 DAY 1
     Route: 065
     Dates: start: 20201012
  19. GEMCITABINE [Suspect]
     Active Substance: GEMCITABINE
     Dosage: CYCLE 3 DAY 8
     Route: 065
     Dates: start: 20201019
  20. GEMCITABINE [Suspect]
     Active Substance: GEMCITABINE
     Dosage: CYCLE 3 DAY 15
     Route: 065
     Dates: start: 20201026
  21. PANTOPRAZOLE [Concomitant]
     Active Substance: PANTOPRAZOLE
     Indication: Prophylaxis
     Dosage: 20 MILLIGRAM FROM 12-DEC-2020 TO DEC-2020
     Route: 048

REACTIONS (1)
  - Peripheral sensorimotor neuropathy [Recovered/Resolved]

NARRATIVE: CASE EVENT DATE: 20201211
